FAERS Safety Report 4949551-1 (Version None)
Quarter: 2006Q1

REPORT INFORMATION
  Report Type: 
  Country: None (occurrence: None)
  Receive Date: 20060316
  Receipt Date: 20060303
  Transmission Date: 20060701
  Serious: Yes (Other)
  Sender: FDA-Public Use
  Company Number: 2006032887

PATIENT
  Age: 31 Year
  Sex: Female

DRUGS (2)
  1. BENADRYL [Suspect]
     Indication: HYPERCHLORHYDRIA
     Dosage: 25 MG, 1 IN 1 DAY, ORAL
     Route: 048
     Dates: start: 20050813
  2. PENTOSAN POLYSULFATE SODIUM (PENTOSAN POLYSULFATE SODIUM) [Suspect]
     Indication: CYSTITIS INTERSTITIAL
     Dosage: ORAL
     Route: 048
     Dates: start: 20050813

REACTIONS (3)
  - COLITIS [None]
  - CYSTITIS INTERSTITIAL [None]
  - HAEMATOCHEZIA [None]
